FAERS Safety Report 10094564 (Version 2)
Quarter: 2014Q3

REPORT INFORMATION
  Report Type: Spontaneous
  Country: US (occurrence: None)
  Receive Date: 20140418
  Receipt Date: 20140806
  Transmission Date: 20150326
  Serious: Yes (Hospitalization, Other)
  Sender: FDA-Public Use
  Company Number: UTC-047206

PATIENT
  Age: 68 Year
  Sex: Male
  Weight: 107.3 kg

DRUGS (22)
  1. NIFEDIPINE (NIFEDIPINE) [Concomitant]
  2. ASPIRIN (ACETYLSALICYLIC ACID) [Concomitant]
     Active Substance: ASPIRIN
  3. TYVASO [Suspect]
     Active Substance: TREPROSTINIL
     Indication: COR PULMONALE CHRONIC
     Route: 055
     Dates: start: 20121119
  4. TENORMIN [Concomitant]
     Active Substance: ATENOLOL
  5. KLOR-CON (POTASSIUM CHLOLRIDE) [Concomitant]
  6. ATORVASTATIN CALCIUM (ATORVASTATIN CALCIUIM) [Concomitant]
  7. PROMETHAZINE HCL (PROMETHAZINE HYDROCHLORIDE) [Concomitant]
  8. ULTRAM (TRAMADOL HYDROCHLORIDE) [Concomitant]
     Active Substance: TRAMADOL HYDROCHLORIDE
  9. PRUTECT (PARAFFIN, SODIUM ALGINATE, SQUALANE) [Concomitant]
  10. ADCIRCA [Concomitant]
     Active Substance: TADALAFIL
  11. FINASTERIDE (FINASTERIDE) [Concomitant]
     Active Substance: FINASTERIDE
  12. PAXIL (PIROXICAM) [Concomitant]
  13. OXYGEN (OXYGEN) [Concomitant]
     Active Substance: OXYGEN
  14. BIAFINE (TROLAMINE) [Concomitant]
  15. LISINOPRIL + HYDROCHLOROTHIAZIDA (HYDROCHLOROTHIAZIDE, LISINOPRIL) [Concomitant]
  16. FUROSEMIDE (FUROSEMIDE) [Concomitant]
     Active Substance: FUROSEMIDE
  17. VENTOLIN [Concomitant]
     Active Substance: ALBUTEROL SULFATE
  18. XARELTO [Concomitant]
     Active Substance: RIVAROXABAN
  19. TAMSULOSIN (TAMSULOSIN) [Concomitant]
     Active Substance: TAMSULOSIN
  20. NEXIUM [Concomitant]
     Active Substance: ESOMEPRAZOLE MAGNESIUM
  21. FISH OIL (FISH OIL) [Concomitant]
     Active Substance: FISH OIL
  22. SULFAMETHOXAZOLE (SULFAMETHOXAZOLE) [Concomitant]

REACTIONS (27)
  - Pain in extremity [None]
  - Catheter site pain [None]
  - Deficiency anaemia [None]
  - Large intestine polyp [None]
  - Thrombosis [None]
  - Gastrooesophageal reflux disease [None]
  - Oral herpes [None]
  - Hypoxia [None]
  - Anaemia [None]
  - Dyspepsia [None]
  - Asthma [None]
  - Peripheral swelling [None]
  - Back pain [None]
  - Melaena [None]
  - Hypokalaemia [None]
  - Hypertension [None]
  - Osteoarthritis [None]
  - Nausea [None]
  - Muscle spasms [None]
  - Arthritis [None]
  - Prostate cancer [None]
  - Chronic respiratory failure [None]
  - Hypercholesterolaemia [None]
  - Respiratory failure [None]
  - Snoring [None]
  - Small intestinal obstruction [None]
  - Decreased activity [None]

NARRATIVE: CASE EVENT DATE: 20131014
